FAERS Safety Report 25846758 (Version 1)
Quarter: 2025Q3

REPORT INFORMATION
  Report Type: Spontaneous
  Country: US (occurrence: US)
  Receive Date: 20250925
  Receipt Date: 20250925
  Transmission Date: 20251020
  Serious: No
  Sender: AMGEN
  Company Number: US-AMGEN-USASP2025191907

PATIENT
  Sex: Female
  Weight: 102 kg

DRUGS (3)
  1. OTEZLA [Suspect]
     Active Substance: APREMILAST
     Indication: Arthralgia
     Route: 065
  2. OTEZLA [Suspect]
     Active Substance: APREMILAST
     Indication: Off label use
  3. DUPIXENT [Concomitant]
     Active Substance: DUPILUMAB
     Indication: Dermatitis atopic
     Dates: end: 20250808

REACTIONS (5)
  - Weight increased [Unknown]
  - Nausea [Unknown]
  - Somnolence [Unknown]
  - Eczema [Unknown]
  - Off label use [Unknown]
